FAERS Safety Report 7092223-0 (Version None)
Quarter: 2010Q4

REPORT INFORMATION
  Report Type: 
  Country: None (occurrence: None)
  Receive Date: 20101109
  Receipt Date: 20101109
  Transmission Date: 20110411
  Serious: Yes (Other)
  Sender: FDA-Public Use
  Company Number: CA-ABBOTT-10P-028-0682407-00

PATIENT
  Sex: Male

DRUGS (8)
  1. HUMIRA [Suspect]
     Indication: CROHN'S DISEASE
     Dosage: 80 MG AT WEEK 2
     Route: 058
     Dates: start: 20101009
  2. PURINETHOL [Concomitant]
     Indication: CROHN'S DISEASE
     Route: 048
  3. INFUFER [Concomitant]
     Indication: ANAEMIA
     Route: 030
  4. VITAMIN B-12 [Concomitant]
     Indication: VITAMIN SUPPLEMENTATION
     Route: 030
  5. MULTI-VITAMINS [Concomitant]
     Indication: VITAMIN SUPPLEMENTATION
     Route: 048
  6. SALMON OIL [Concomitant]
     Indication: SUPPLEMENTATION THERAPY
     Route: 048
  7. VITAMIN D [Concomitant]
     Indication: VITAMIN SUPPLEMENTATION
     Route: 048
  8. GLUCOSAMINE [Concomitant]
     Indication: MYALGIA
     Route: 048

REACTIONS (1)
  - HAEMOGLOBIN ABNORMAL [None]
